FAERS Safety Report 25055711 (Version 2)
Quarter: 2025Q1

REPORT INFORMATION
  Report Type: Report from Study
  Country: US (occurrence: US)
  Receive Date: 20250309
  Receipt Date: 20250317
  Transmission Date: 20250409
  Serious: No
  Sender: ACADIA PHARMACEUTICALS
  Company Number: US-ACADIA PHARMACEUTICALS INC.-ACA-2025-PIM-002197

PATIENT
  Age: 73 Year
  Sex: Female

DRUGS (12)
  1. NUPLAZID [Suspect]
     Active Substance: PIMAVANSERIN TARTRATE
     Indication: Parkinson^s disease
     Dosage: 34 MILLIGRAM, QD
     Route: 048
     Dates: start: 20241226, end: 20250224
  2. DIAZEPAM [Concomitant]
     Active Substance: DIAZEPAM
  3. CITALOPRAM [Concomitant]
     Active Substance: CITALOPRAM
  4. SIMVASTATIN [Concomitant]
     Active Substance: SIMVASTATIN
  5. LORAZEPAM [Concomitant]
     Active Substance: LORAZEPAM
  6. METHOCARBAMOL [Concomitant]
     Active Substance: METHOCARBAMOL
  7. TRAZODONE [Concomitant]
     Active Substance: TRAZODONE HYDROCHLORIDE
  8. LISINOPRIL [Concomitant]
     Active Substance: LISINOPRIL
  9. CARBIDOPA\LEVODOPA [Concomitant]
     Active Substance: CARBIDOPA\LEVODOPA
  10. TRIHEXYPHENIDYL [Concomitant]
     Active Substance: TRIHEXYPHENIDYL
  11. MINERALS\VITAMINS [Concomitant]
     Active Substance: MINERALS\VITAMINS
  12. PEPCID AC [Concomitant]
     Active Substance: FAMOTIDINE

REACTIONS (1)
  - Drug ineffective [Recovered/Resolved]

NARRATIVE: CASE EVENT DATE: 20250102
